FAERS Safety Report 8151471-9 (Version None)
Quarter: 2012Q1

REPORT INFORMATION
  Report Type: 
  Country: None (occurrence: None)
  Receive Date: 20120220
  Receipt Date: 20120210
  Transmission Date: 20120608
  Serious: Yes (Hospitalization)
  Sender: FDA-Public Use
  Company Number: CH-TEVA-322080ISR

PATIENT
  Sex: Female

DRUGS (14)
  1. TRISENOX [Suspect]
     Dates: start: 20090129
  2. ATRACURIUM BESYLATE [Suspect]
     Route: 048
     Dates: start: 20090618, end: 20090702
  3. AMIKIN [Concomitant]
     Dosage: 1000 MILLIGRAM;
     Route: 042
     Dates: start: 20090712, end: 20090715
  4. TRISENOX [Suspect]
     Dates: start: 20090408
  5. LEVOFLOXACIN [Concomitant]
     Dosage: 1000 MILLIGRAM;
     Route: 048
     Dates: start: 20090719
  6. NOPIL FORTE [Concomitant]
     Route: 048
     Dates: start: 20090720, end: 20090720
  7. METHOTREXATE [Suspect]
     Route: 048
     Dates: start: 20090618, end: 20090709
  8. MERCAPTOPURINE [Suspect]
     Route: 048
     Dates: start: 20090618, end: 20090711
  9. CEFEPIME [Concomitant]
     Dosage: 4 GRAM;
     Route: 042
     Dates: start: 20090712, end: 20090712
  10. CEFEPIME [Concomitant]
     Dosage: 6 GRAM;
     Route: 042
     Dates: start: 20090713, end: 20090717
  11. NOPIL FORTE [Concomitant]
     Route: 048
     Dates: start: 20090713, end: 20090718
  12. CEFEPIME [Concomitant]
     Dosage: 2 GRAM;
     Route: 042
     Dates: start: 20090718, end: 20090718
  13. BACTRIM DS [Concomitant]
     Route: 048
     Dates: start: 20090722
  14. LEVOFLOXACIN [Concomitant]
     Dosage: 500 MILLIGRAM;
     Route: 048
     Dates: start: 20090718, end: 20090718

REACTIONS (2)
  - PANCYTOPENIA [None]
  - PYREXIA [None]
